FAERS Safety Report 20557991 (Version 2)
Quarter: 2022Q3

REPORT INFORMATION
  Report Type: Report from Study
  Country: FR (occurrence: FR)
  Receive Date: 20220307
  Receipt Date: 20220804
  Transmission Date: 20221027
  Serious: Yes (Hospitalization, Other)
  Sender: FDA-Public Use
  Company Number: FR-SERVIER-S22000409

PATIENT

DRUGS (10)
  1. PEGASPARGASE [Suspect]
     Active Substance: PEGASPARGASE
     Indication: Acute lymphocytic leukaemia
     Dosage: 3525 IU, D4, D43
     Route: 042
     Dates: start: 20210304, end: 20210416
  2. VINCRISTINE [Suspect]
     Active Substance: VINCRISTINE
     Indication: Acute lymphocytic leukaemia
     Dosage: 2 MG, D1, D8, D15, D43, D50
     Route: 042
     Dates: start: 20210301, end: 20210423
  3. DAUNORUBICIN [Suspect]
     Active Substance: DAUNORUBICIN
     Indication: Acute lymphocytic leukaemia
     Dosage: 35.3 MG, D1, D8, D15, D43, D50
     Route: 042
     Dates: start: 20210301, end: 20210423
  4. DEXAMETHASONE [Suspect]
     Active Substance: DEXAMETHASONE
     Indication: Acute lymphocytic leukaemia
     Dosage: 14 MG, D1 TO D7, D15 TO D21
     Route: 048
     Dates: start: 20210301, end: 20210321
  5. METHOTREXATE [Suspect]
     Active Substance: METHOTREXATE
     Indication: Acute lymphocytic leukaemia
     Dosage: 6 MG, D4 AND D31
     Route: 037
     Dates: start: 20210304, end: 20210406
  6. CYTARABINE [Suspect]
     Active Substance: CYTARABINE
     Indication: Acute lymphocytic leukaemia
     Dosage: 15 MG, D4 AND D31
     Route: 037
     Dates: start: 20210304, end: 20210406
  7. CYTARABINE [Suspect]
     Active Substance: CYTARABINE
     Dosage: 107 MG, D31 TO D33, D38 TO D41
     Route: 042
     Dates: start: 20210406, end: 20210414
  8. PREDNISOLONE [Suspect]
     Active Substance: PREDNISOLONE
     Indication: Acute lymphocytic leukaemia
     Dosage: 5 MG, D4 AND D31
     Route: 037
     Dates: start: 20210304, end: 20210406
  9. MERCAPTOPURINE [Suspect]
     Active Substance: MERCAPTOPURINE
     Indication: Acute lymphocytic leukaemia
     Dosage: 100 MG, D29 TO D42
     Route: 048
     Dates: start: 20210402, end: 20210415
  10. CYCLOPHOSPHAMIDE [Suspect]
     Active Substance: CYCLOPHOSPHAMIDE
     Indication: Acute lymphocytic leukaemia
     Dosage: 1430 MG, D29
     Route: 042
     Dates: start: 20210402

REACTIONS (2)
  - Hyperbilirubinaemia [Recovering/Resolving]
  - Febrile bone marrow aplasia [Recovered/Resolved]

NARRATIVE: CASE EVENT DATE: 20210408
